FAERS Safety Report 18413164 (Version 1)
Quarter: 2020Q4

REPORT INFORMATION
  Report Type: Spontaneous
  Country: GB (occurrence: GB)
  Receive Date: 20201022
  Receipt Date: 20201022
  Transmission Date: 20210114
  Serious: Yes (Life-Threatening, Hospitalization)
  Sender: FDA-Public Use
  Company Number: GB-BAUSCH-BL-2020-029758

PATIENT
  Age: 58 Year
  Sex: Male
  Weight: 98 kg

DRUGS (2)
  1. GENTAMICIN. [Suspect]
     Active Substance: GENTAMICIN
     Indication: PROPHYLAXIS
     Route: 042
     Dates: start: 20200923, end: 20200923
  2. TEICOPLANIN [Suspect]
     Active Substance: TEICOPLANIN
     Indication: PROPHYLAXIS
     Route: 042
     Dates: start: 20200923, end: 20200923

REACTIONS (1)
  - Anaphylactic reaction [Recovering/Resolving]

NARRATIVE: CASE EVENT DATE: 20200923
